FAERS Safety Report 8310239-0 (Version None)
Quarter: 2012Q2

REPORT INFORMATION
  Report Type: 
  Country: None (occurrence: None)
  Receive Date: 20120425
  Receipt Date: 20120419
  Transmission Date: 20120825
  Serious: Yes (Hospitalization)
  Sender: FDA-Public Use
  Company Number: PL-BRISTOL-MYERS SQUIBB COMPANY-16395279

PATIENT
  Age: 60 Year
  Sex: Female

DRUGS (7)
  1. METHOTREXATE [Suspect]
     Indication: RHEUMATOID ARTHRITIS
     Dates: start: 20080907
  2. FOLIC ACID [Concomitant]
     Dates: start: 20080902
  3. AMLODIPINE [Concomitant]
     Dates: start: 20080831
  4. METHYLPREDNISOLONE [Concomitant]
     Dates: start: 20060701
  5. ABATACEPT [Suspect]
     Indication: RHEUMATOID ARTHRITIS
     Dosage: 26FEB09-16JUL09:100ML:IV 16FEB09-6AUG09:125MG:SC 12AUG09-ONG:125MG:SC
     Route: 058
     Dates: start: 20090812
  6. HEPTRAL [Concomitant]
     Dates: start: 20080905
  7. CILAZAPRIL [Concomitant]
     Dates: start: 20080903

REACTIONS (2)
  - UTERINE PROLAPSE [None]
  - VAGINAL PROLAPSE [None]
